FAERS Safety Report 9471859 (Version 4)
Quarter: 2013Q4

REPORT INFORMATION
  Report Type: Report from Study
  Country: US (occurrence: US)
  Receive Date: 20130822
  Receipt Date: 20131127
  Transmission Date: 20140711
  Serious: Yes (Other)
  Sender: FDA-Public Use
  Company Number: US-ROCHE-1264678

PATIENT
  Sex: Female
  Weight: 75.7 kg

DRUGS (5)
  1. ACTEMRA [Suspect]
     Indication: JUVENILE IDIOPATHIC ARTHRITIS
     Route: 042
  2. ACTEMRA [Suspect]
     Indication: JUVENILE IDIOPATHIC ARTHRITIS
     Route: 042
     Dates: start: 20130722
  3. ACTEMRA [Suspect]
     Route: 042
     Dates: start: 20130819
  4. ACTEMRA [Suspect]
     Route: 042
     Dates: start: 20131112
  5. NAPROSYN [Concomitant]
     Indication: PAIN

REACTIONS (10)
  - Arthralgia [Unknown]
  - Joint stiffness [Unknown]
  - Joint swelling [Unknown]
  - Musculoskeletal stiffness [Unknown]
  - Joint range of motion decreased [Unknown]
  - Musculoskeletal pain [Unknown]
  - Arthralgia [Unknown]
  - Inflammatory marker increased [Unknown]
  - Juvenile idiopathic arthritis [Unknown]
  - Musculoskeletal pain [Unknown]
